FAERS Safety Report 5080597-1 (Version None)
Quarter: 2006Q3

REPORT INFORMATION
  Report Type: 
  Country: None (occurrence: None)
  Receive Date: 20060815
  Receipt Date: 20060619
  Transmission Date: 20061208
  Serious: Yes (Life-Threatening, Hospitalization)
  Sender: FDA-Public Use
  Company Number: JP-JPN-A200602131

PATIENT
  Age: 81 Year
  Sex: Female
  Weight: 43 kg

DRUGS (9)
  1. VALTREX [Suspect]
     Indication: HERPES ZOSTER
     Dosage: 1000MG THREE TIMES PER DAY
     Route: 048
     Dates: start: 20060612, end: 20060614
  2. LIPOVAS [Concomitant]
     Dosage: 1U PER DAY
     Route: 048
     Dates: start: 20050101, end: 20060613
  3. NORVASC [Concomitant]
     Dosage: 1U PER DAY
     Route: 048
     Dates: start: 20050101, end: 20060613
  4. BLOPRESS [Concomitant]
     Dosage: 1U PER DAY
     Route: 048
     Dates: start: 20050101, end: 20060613
  5. NAME UNKNOWN [Concomitant]
     Dosage: 2U PER DAY
     Route: 048
     Dates: start: 20050101, end: 20060613
  6. METHYLCOBAL [Concomitant]
     Dosage: 3U PER DAY
     Route: 048
     Dates: start: 20060613, end: 20060613
  7. LOXONIN [Concomitant]
     Dosage: 3U PER DAY
     Route: 048
     Dates: start: 20060613, end: 20060613
  8. LOXOPROFEN SODIUM [Concomitant]
     Dates: start: 20060612
  9. MECOBALAMIN [Concomitant]
     Dates: start: 20060612

REACTIONS (14)
  - ANOREXIA [None]
  - ANURIA [None]
  - BLOOD CREATININE INCREASED [None]
  - DEPRESSED LEVEL OF CONSCIOUSNESS [None]
  - FACIAL PAIN [None]
  - FEELING ABNORMAL [None]
  - MALAISE [None]
  - NAUSEA [None]
  - NEURALGIA [None]
  - POLYURIA [None]
  - RENAL FAILURE ACUTE [None]
  - URINARY RETENTION [None]
  - URINE OUTPUT DECREASED [None]
  - VOMITING [None]
